FAERS Safety Report 6024294-4 (Version None)
Quarter: 2008Q4

REPORT INFORMATION
  Report Type: 
  Country: None (occurrence: None)
  Receive Date: 20081231
  Receipt Date: 20081229
  Transmission Date: 20090506
  Serious: Yes (Hospitalization)
  Sender: FDA-Public Use
  Company Number: US-JNJFOC-20080702119

PATIENT
  Sex: Male
  Weight: 86.18 kg

DRUGS (13)
  1. LEVAQUIN [Suspect]
     Indication: ARTHROPOD BITE
     Route: 048
  2. PRAVASTATIN [Concomitant]
     Indication: BLOOD CHOLESTEROL
     Route: 048
  3. BUPROPION [Concomitant]
     Indication: ANTIDEPRESSANT THERAPY
     Dosage: AT NOON
     Route: 048
  4. VENLAFAXINE [Concomitant]
     Indication: ANTIDEPRESSANT THERAPY
     Route: 065
  5. ROSIGLITAZONE [Concomitant]
     Indication: DIABETES MELLITUS
     Dosage: HALF TWICE DAILY
     Route: 065
  6. ALL OTHER THERAPEUTIC PRODUCTS [Concomitant]
     Indication: BLOOD CHOLESTEROL
     Route: 065
  7. GEMFIBROZIL [Concomitant]
     Indication: BLOOD CHOLESTEROL
     Route: 048
  8. NAPROXEN [Concomitant]
     Indication: ANTIINFLAMMATORY THERAPY
     Route: 065
  9. TERAZOSIN HCL [Concomitant]
     Indication: HYPERTENSION
     Route: 065
  10. METFORMIN HCL [Concomitant]
     Indication: DIABETES MELLITUS
     Route: 048
  11. LISINOPRIL [Concomitant]
     Indication: HYPERTENSION
     Route: 065
  12. EFFEXOR [Concomitant]
     Route: 048
  13. LIPITOR [Concomitant]
     Route: 065

REACTIONS (13)
  - CHROMATURIA [None]
  - DISORIENTATION [None]
  - DIZZINESS [None]
  - ERYTHEMA [None]
  - ESCHAR [None]
  - HAEMOLYTIC ANAEMIA [None]
  - JAUNDICE [None]
  - MYALGIA [None]
  - PYREXIA [None]
  - RASH [None]
  - RASH ERYTHEMATOUS [None]
  - SKIN EXFOLIATION [None]
  - WEIGHT DECREASED [None]
